FAERS Safety Report 14161732 (Version 4)
Quarter: 2017Q4

REPORT INFORMATION
  Report Type: Report from Study
  Country: US (occurrence: US)
  Receive Date: 20171106
  Receipt Date: 20171205
  Transmission Date: 20180321
  Serious: Yes (Death, Hospitalization, Other)
  Sender: FDA-Public Use
  Company Number: US-GILEAD-2017-0302853

PATIENT
  Age: 19 Year
  Sex: Male

DRUGS (2)
  1. REMODULIN [Concomitant]
     Active Substance: TREPROSTINIL
  2. AMBRISENTAN [Suspect]
     Active Substance: AMBRISENTAN
     Indication: PULMONARY ARTERIAL HYPERTENSION
     Dosage: 10 MG, QD
     Route: 065
     Dates: start: 20150814

REACTIONS (5)
  - Cardiac arrest [Fatal]
  - Off label use [Recovered/Resolved]
  - Respiratory arrest [Fatal]
  - Haemoptysis [Fatal]
  - Pneumonia [Unknown]

NARRATIVE: CASE EVENT DATE: 20150814
